FAERS Safety Report 4997662-7 (Version None)
Quarter: 2006Q1

REPORT INFORMATION
  Report Type: 
  Country: None (occurrence: None)
  Receive Date: 20060315
  Receipt Date: 20060120
  Transmission Date: 20060701
  Serious: Yes (Other)
  Sender: FDA-Public Use
  Company Number: 433260

PATIENT
  Sex: Female

DRUGS (1)
  1. BONIVA [Suspect]
     Dosage: 150 MG  1 PER MONTH  ORAL
     Route: 048
     Dates: start: 20060115

REACTIONS (4)
  - DRUG ADMINISTRATION ERROR [None]
  - DYSPEPSIA [None]
  - INSOMNIA [None]
  - THROAT TIGHTNESS [None]
